FAERS Safety Report 8319435-X (Version None)
Quarter: 2012Q2

REPORT INFORMATION
  Report Type: 
  Country: None (occurrence: None)
  Receive Date: 20120427
  Receipt Date: 20120424
  Transmission Date: 20120825
  Serious: Yes (Hospitalization)
  Sender: FDA-Public Use
  Company Number: JP-ABBOTT-11P-087-0871325-00

PATIENT
  Sex: Male
  Weight: 60 kg

DRUGS (4)
  1. HUMIRA [Suspect]
  2. HUMIRA [Suspect]
     Indication: CROHN'S DISEASE
     Route: 058
     Dates: start: 20101119, end: 20101119
  3. HUMIRA [Suspect]
  4. IMURAN [Suspect]
     Indication: CROHN'S DISEASE
     Dosage: 100 MG DAILY DOSE
     Route: 048
     Dates: start: 20110801, end: 20111101

REACTIONS (3)
  - RED BLOOD CELL COUNT DECREASED [None]
  - ANAEMIA [None]
  - WHITE BLOOD CELL COUNT DECREASED [None]
